FAERS Safety Report 13238535 (Version 1)
Quarter: 2017Q1

REPORT INFORMATION
  Report Type: Spontaneous
  Country: US (occurrence: US)
  Receive Date: 20170216
  Receipt Date: 20170216
  Transmission Date: 20170428
  Serious: No
  Sender: FDA-Public Use
  Company Number: US-WATSON-2016-11786

PATIENT
  Age: 54 Year
  Sex: Female

DRUGS (1)
  1. FENTANYL CITRATE (WATSON LABORATORIES) [Suspect]
     Active Substance: FENTANYL CITRATE
     Indication: PRODUCT USED FOR UNKNOWN INDICATION
     Dosage: UNK UNK, UNKNOWN
     Route: 062

REACTIONS (1)
  - Application site vesicles [Unknown]
